FAERS Safety Report 9518333 (Version 2)
Quarter: 2013Q3

REPORT INFORMATION
  Report Type: Report from Study
  Country: US (occurrence: US)
  Receive Date: 20130912
  Receipt Date: 20130926
  Transmission Date: 20140515
  Serious: Yes (Other)
  Sender: FDA-Public Use
  Company Number: US-ROCHE-1273640

PATIENT
  Age: 69 Year
  Sex: Female
  Weight: 67.65 kg

DRUGS (14)
  1. TOCILIZUMAB [Suspect]
     Indication: RHEUMATOID ARTHRITIS
     Dosage: TOTAL MONTHLY DOSE 254.4MG
     Route: 042
     Dates: start: 20120724
  2. TOCILIZUMAB [Suspect]
     Route: 042
     Dates: start: 20130213
  3. TOCILIZUMAB [Suspect]
     Route: 042
     Dates: start: 20130328
  4. TOCILIZUMAB [Suspect]
     Route: 042
     Dates: start: 20130425
  5. TOCILIZUMAB [Suspect]
     Route: 042
     Dates: start: 20130523
  6. EPINEPHRINE [Concomitant]
     Dosage: 0.3MG/0.3ML
     Route: 065
     Dates: start: 20130417
  7. HYDROCORTISONE CREAM [Concomitant]
     Route: 065
  8. ZANTAC [Concomitant]
     Route: 048
     Dates: start: 20130326
  9. ZYRTEC [Concomitant]
  10. REQUIP [Concomitant]
     Route: 048
     Dates: start: 20130326
  11. AMBIEN [Concomitant]
     Route: 048
     Dates: start: 20130326
  12. FOLIC ACID [Concomitant]
     Route: 048
     Dates: start: 20130326, end: 20130926
  13. METHOTREXATE [Concomitant]
     Dosage: 5 TABS PER WEEK.
     Route: 048
     Dates: start: 20130531
  14. HYDROCODONE/ACETAMINOPHEN [Concomitant]
     Route: 048
     Dates: start: 20130409, end: 20130410

REACTIONS (2)
  - Rash [Unknown]
  - Rectal haemorrhage [Recovered/Resolved]
